FAERS Safety Report 8105554-X (Version None)
Quarter: 2012Q1

REPORT INFORMATION
  Report Type: 
  Country: None (occurrence: None)
  Receive Date: 20120201
  Receipt Date: 20120127
  Transmission Date: 20120608
  Serious: Yes (Hospitalization)
  Sender: FDA-Public Use
  Company Number: GB-PFIZER INC-2010108693

PATIENT
  Age: 72 Year
  Sex: Female
  Weight: 75 kg

DRUGS (10)
  1. RAMIPRIL [Suspect]
     Indication: HYPERTENSION
  2. MIRTAZAPINE [Concomitant]
     Indication: DEPRESSION
     Dosage: 45 MG, UNK
     Route: 048
     Dates: start: 20090109, end: 20100325
  3. INSULIN GLARGINE [Concomitant]
     Dosage: UNK
  4. SIMVASTATIN [Concomitant]
     Indication: HYPERLIPIDAEMIA
     Dosage: 40 MG, UNK
     Route: 048
     Dates: start: 20070411, end: 20100325
  5. NOVORAPID [Concomitant]
     Dosage: UNK
  6. LANSOPRAZOLE [Concomitant]
     Dosage: UNK
  7. LEVOTHYROXINE [Concomitant]
     Dosage: UNK
  8. SENNA [Concomitant]
     Dosage: UNK
  9. RAMIPRIL [Suspect]
     Indication: GLOMERULAR FILTRATION RATE DECREASED
     Dosage: 2.5 MG, 1X/DAY
     Route: 048
     Dates: start: 20100315, end: 20100325
  10. ACETAMINOPHEN AND CODEINE PHOSPHATE [Concomitant]
     Dosage: UNK

REACTIONS (3)
  - LIVER FUNCTION TEST ABNORMAL [None]
  - GLOMERULAR FILTRATION RATE DECREASED [None]
  - CHOLESTATIC LIVER INJURY [None]
